FAERS Safety Report 6879023-9 (Version None)
Quarter: 2010Q3

REPORT INFORMATION
  Report Type: 
  Country: None (occurrence: None)
  Receive Date: 20100728
  Receipt Date: 20100628
  Transmission Date: 20110219
  Serious: Yes (Death, Hospitalization, Other)
  Sender: FDA-Public Use
  Company Number: PHEH2005US04882

PATIENT
  Sex: Male
  Weight: 96.1 kg

DRUGS (19)
  1. ZOMETA [Suspect]
     Indication: MULTIPLE MYELOMA
     Dosage: 4 MG Q21 DAYS
     Dates: start: 20030127, end: 20050107
  2. AREDIA [Suspect]
  3. GLUCOPHAGE [Concomitant]
     Dosage: 1 G, BID
     Dates: start: 20000101
  4. NORVASC [Concomitant]
     Dosage: 5 MG, QD
     Dates: start: 20000101
  5. MAXZIDE [Concomitant]
     Dosage: 37.5/25 MG, QD
     Dates: start: 20010101
  6. MONOPRIL [Concomitant]
     Dosage: 40 MG, QD
     Dates: start: 20000101
  7. ALOCRIL [Concomitant]
     Dosage: 2 %, UNK
     Dates: start: 20020101
  8. GLUCOTROL XL [Concomitant]
     Dosage: 10 MG, UNK
     Dates: start: 20000101
  9. PRANDIN [Concomitant]
     Dosage: 2 MG, UNK
     Dates: start: 20010101
  10. METFORMIN HYDROCHLORIDE [Concomitant]
     Dosage: 1000 MG, UNK
     Dates: start: 20020101
  11. PERCOCET [Concomitant]
     Dosage: 10/650 MG, UNK
     Dates: start: 20020101
  12. DYNACIRC [Concomitant]
  13. OXYCONTIN [Concomitant]
  14. ATIVAN [Concomitant]
  15. VASOTEC [Concomitant]
  16. DULCOLAX [Concomitant]
  17. ZANTAC [Concomitant]
  18. DILAUDID [Concomitant]
  19. REGLAN [Concomitant]

REACTIONS (57)
  - ABDOMINAL DISCOMFORT [None]
  - ACTINOMYCOSIS [None]
  - ANAEMIA OF MALIGNANT DISEASE [None]
  - ASTHENIA [None]
  - BACK PAIN [None]
  - BIOPSY [None]
  - BONE DEBRIDEMENT [None]
  - BONE PAIN [None]
  - CACHEXIA [None]
  - CATHETER PLACEMENT [None]
  - CEREBELLAR ATROPHY [None]
  - COMPRESSION FRACTURE [None]
  - CONSTIPATION [None]
  - DEATH [None]
  - DECREASED APPETITE [None]
  - DECUBITUS ULCER [None]
  - DENTAL OPERATION [None]
  - DISCOMFORT [None]
  - EATING DISORDER [None]
  - EPISTAXIS [None]
  - EXCESSIVE GRANULATION TISSUE [None]
  - FAECALOMA [None]
  - FALL [None]
  - GASTROOESOPHAGEAL REFLUX DISEASE [None]
  - GINGIVAL BLEEDING [None]
  - HYPERPLASIA [None]
  - HYPERVISCOSITY SYNDROME [None]
  - HYPOACUSIS [None]
  - INFLAMMATION [None]
  - MALIGNANT NEOPLASM PROGRESSION [None]
  - MENINGEAL NEOPLASM [None]
  - METABOLIC ACIDOSIS [None]
  - MONOCLONAL IMMUNOGLOBULIN PRESENT [None]
  - MULTIPLE MYELOMA [None]
  - MUSCULAR WEAKNESS [None]
  - MUSCULOSKELETAL CHEST PAIN [None]
  - OSTEOLYSIS [None]
  - OSTEOMYELITIS [None]
  - OSTEONECROSIS OF JAW [None]
  - PAIN [None]
  - PANCYTOPENIA [None]
  - PURULENT DISCHARGE [None]
  - RADICULOPATHY [None]
  - RENAL FAILURE ACUTE [None]
  - SINUSITIS [None]
  - SKIN LESION [None]
  - SPINAL COLUMN STENOSIS [None]
  - SWELLING [None]
  - SYNCOPE [None]
  - THROAT TIGHTNESS [None]
  - THROMBOCYTOPENIA [None]
  - TINEA INFECTION [None]
  - TOOTH DISORDER [None]
  - TOOTH EXTRACTION [None]
  - TOOTH FRACTURE [None]
  - TOOTHACHE [None]
  - WEIGHT DECREASED [None]
